FAERS Safety Report 7874690-5 (Version None)
Quarter: 2011Q4

REPORT INFORMATION
  Report Type: 
  Country: None (occurrence: None)
  Receive Date: 20111031
  Receipt Date: 20111024
  Transmission Date: 20120403
  Serious: Yes (Other)
  Sender: FDA-Public Use
  Company Number: US-PFIZER INC-2011127081

PATIENT
  Sex: Male

DRUGS (2)
  1. CHANTIX [Suspect]
     Indication: SMOKING CESSATION THERAPY
     Dosage: UNK
     Dates: start: 20070701, end: 20070901
  2. CHANTIX [Suspect]
     Dosage: UNK
     Dates: start: 20080901, end: 20081001

REACTIONS (6)
  - DEPRESSION [None]
  - ANXIETY [None]
  - MOOD SWINGS [None]
  - SUICIDE ATTEMPT [None]
  - INTENTIONAL OVERDOSE [None]
  - INSOMNIA [None]
